FAERS Safety Report 5825035-3 (Version None)
Quarter: 2008Q3

REPORT INFORMATION
  Report Type: 
  Country: None (occurrence: None)
  Receive Date: 20080725
  Receipt Date: 20080725
  Transmission Date: 20090109
  Serious: Yes (Other)
  Sender: FDA-Public Use
  Company Number: None

PATIENT
  Age: 31 Year
  Sex: Female
  Weight: 50.8029 kg

DRUGS (1)
  1. PHENERGAN [Suspect]
     Indication: NAUSEA
     Dosage: USED THIS DRUGALL MY LIFE
     Dates: start: 20080423, end: 20080424

REACTIONS (7)
  - INFUSION RELATED REACTION [None]
  - INFUSION SITE SWELLING [None]
  - MEDICATION ERROR [None]
  - NERVE INJURY [None]
  - PAIN IN EXTREMITY [None]
  - THROMBOSIS [None]
  - VEIN DISCOLOURATION [None]
